FAERS Safety Report 16266750 (Version 1)
Quarter: 2020Q3

REPORT INFORMATION
  Report Type: Report from Study
  Country: US (occurrence: US)
  Receive Date: 20190502
  Receipt Date: 20190502
  Transmission Date: 20201105
  Serious: Yes (Other)
  Sender: FDA-Public Use
  Company Number: US-JNJFOC-20190440820

PATIENT
  Sex: Male

DRUGS (3)
  1. ABIRATERONE ACETATE. [Suspect]
     Active Substance: ABIRATERONE ACETATE
     Indication: PROSTATE CANCER METASTATIC
     Route: 048
  2. ELTANEXOR. [Suspect]
     Active Substance: ELTANEXOR
     Indication: PROSTATE CANCER METASTATIC
     Route: 065
  3. ENZALUTAMIDE [Concomitant]
     Active Substance: ENZALUTAMIDE
     Indication: PROSTATE CANCER METASTATIC
     Route: 065

REACTIONS (10)
  - Fatigue [Unknown]
  - Decreased appetite [Unknown]
  - Nausea [Unknown]
  - Aspartate aminotransferase increased [Unknown]
  - Neutropenia [Unknown]
  - Weight decreased [Unknown]
  - Vomiting [Unknown]
  - Anaemia [Unknown]
  - Dysgeusia [Unknown]
  - Diarrhoea [Unknown]
